FAERS Safety Report 24904901 (Version 3)
Quarter: 2025Q2

REPORT INFORMATION
  Report Type: Spontaneous
  Country: DE (occurrence: DE)
  Receive Date: 20250130
  Receipt Date: 20250625
  Transmission Date: 20250716
  Serious: No
  Sender: AMGEN
  Company Number: US-AMGEN-DEUSP2025016522

PATIENT
  Age: 67 Year
  Sex: Male

DRUGS (1)
  1. OTEZLA [Suspect]
     Active Substance: APREMILAST
     Indication: Product used for unknown indication
     Dosage: 30 MILLIGRAM, BID
     Route: 065

REACTIONS (2)
  - Latent tuberculosis [Unknown]
  - Amnestic disorder [Unknown]

NARRATIVE: CASE EVENT DATE: 20250113
